FAERS Safety Report 5576828-1 (Version None)
Quarter: 2007Q4

REPORT INFORMATION
  Report Type: 
  Country: None (occurrence: None)
  Receive Date: 20071228
  Receipt Date: 20071222
  Transmission Date: 20080405
  Serious: Yes (Hospitalization)
  Sender: FDA-Public Use
  Company Number: SE-ABBOTT-07P-150-0431307-00

PATIENT
  Age: 70 Year
  Sex: Male
  Weight: 65.3 kg

DRUGS (4)
  1. ZEMPLAR [Suspect]
     Indication: SECONDARY HYPOTHYROIDISM
  2. ACETAMINOPHEN [Concomitant]
     Indication: INSOMNIA
     Route: 048
  3. INSULIN [Concomitant]
     Indication: DRUG USE FOR UNKNOWN INDICATION
  4. INSULIN NOVOMIX [Concomitant]
     Indication: DRUG USE FOR UNKNOWN INDICATION

REACTIONS (10)
  - ASTHENIA [None]
  - BLOOD GLUCOSE DECREASED [None]
  - BLOOD GLUCOSE INCREASED [None]
  - DIALYSIS DEVICE COMPLICATION [None]
  - FALL [None]
  - FATIGUE [None]
  - HAEMATOMA [None]
  - OEDEMA PERIPHERAL [None]
  - PAIN [None]
  - SCRATCH [None]
